FAERS Safety Report 7830562-3 (Version None)
Quarter: 2011Q4

REPORT INFORMATION
  Report Type: 
  Country: None (occurrence: None)
  Receive Date: 20111021
  Receipt Date: 20111013
  Transmission Date: 20120403
  Serious: Yes (Other)
  Sender: FDA-Public Use
  Company Number: US-JNJFOC-20111006227

PATIENT
  Age: 68 Year
  Sex: Female

DRUGS (16)
  1. FENTANYL [Concomitant]
     Route: 042
  2. LOTENSIN [Concomitant]
  3. NORVASC [Concomitant]
  4. TYLENOL-500 [Suspect]
     Indication: ILL-DEFINED DISORDER
     Route: 048
  5. REGLAN [Concomitant]
  6. NORCO [Concomitant]
  7. HYDROMORPHONE HCL [Concomitant]
  8. CEFAZOLIN [Concomitant]
  9. TRANEXAMIC ACID [Concomitant]
  10. TYLENOL-500 [Suspect]
     Route: 048
  11. ZESTRIL [Concomitant]
  12. LASIX [Concomitant]
  13. TRAMADOL HCL [Concomitant]
  14. XARELTO [Suspect]
     Indication: KNEE ARTHROPLASTY
     Route: 048
     Dates: start: 20110929, end: 20110930
  15. MULTI-VITAMINS [Concomitant]
  16. LOPRESSOR [Concomitant]

REACTIONS (1)
  - DEEP VEIN THROMBOSIS [None]
